FAERS Safety Report 19743941 (Version 1)
Quarter: 2021Q3

REPORT INFORMATION
  Report Type: Spontaneous
  Country: US (occurrence: US)
  Receive Date: 20210823
  Receipt Date: 20210823
  Transmission Date: 20211014
  Serious: No
  Sender: FDA-Public Use
  Company Number: None

PATIENT
  Age: 46 Year
  Sex: Male
  Weight: 82.1 kg

DRUGS (2)
  1. BUPROPION (BUPROPION HCL 150MG 24HR TAB, SA) [Suspect]
     Active Substance: BUPROPION HYDROCHLORIDE
     Indication: ANXIETY
     Route: 048
     Dates: start: 20210618, end: 20210621
  2. BUPROPION (BUPROPION HCL 150MG 24HR TAB, SA) [Suspect]
     Active Substance: BUPROPION HYDROCHLORIDE
     Indication: DEPRESSION
     Route: 048
     Dates: start: 20210618, end: 20210621

REACTIONS (7)
  - Fatigue [None]
  - Hallucination, auditory [None]
  - Insomnia [None]
  - Tachyphrenia [None]
  - Asthenia [None]
  - Libido decreased [None]
  - Irritability [None]

NARRATIVE: CASE EVENT DATE: 20210622
